FAERS Safety Report 12784496 (Version 1)
Quarter: 2016Q3

REPORT INFORMATION
  Report Type: Spontaneous
  Country: NO (occurrence: NO)
  Receive Date: 20160927
  Receipt Date: 20160927
  Transmission Date: 20161109
  Serious: Yes (Disabling)
  Sender: FDA-Public Use
  Company Number: NO-009507513-1609NOR009593

PATIENT
  Age: 48 Year
  Sex: Female
  Weight: 89 kg

DRUGS (8)
  1. EZETROL [Suspect]
     Active Substance: EZETIMIBE
     Indication: BLOOD CHOLESTEROL INCREASED
  2. CALCIUM COMPOUNDS [Concomitant]
  3. VITAMIN D [Concomitant]
     Active Substance: CHOLECALCIFEROL
     Dosage: ^MAXIMUM RECOMMENDED DOSE^
  4. MAGNESIUM (UNSPECIFIED) [Concomitant]
     Active Substance: MAGNESIUM
  5. TRIOBE [Concomitant]
     Indication: VITAMIN B COMPLEX DEFICIENCY
  6. OMEGA-3 ACIDS [Concomitant]
     Active Substance: OMEGA-3 FATTY ACIDS
  7. LEVAXIN [Suspect]
     Active Substance: LEVOTHYROXINE SODIUM
     Indication: HYPOTHYROIDISM
     Dosage: 1 TABLET TAKEN EVERY MORNING BEFORE I GET UP, AND AT LEAST 45 MIN BEFORE BREAKFAST / FOOD
     Dates: start: 19900501
  8. IBUX [Concomitant]
     Active Substance: IBUPROFEN
     Indication: ARTHRALGIA
     Dosage: 600 MG, AS NECESSARY

REACTIONS (6)
  - Nausea [Unknown]
  - Dizziness [Unknown]
  - Vitamin B complex deficiency [Unknown]
  - Headache [Unknown]
  - Blood cholesterol increased [Not Recovered/Not Resolved]
  - Arthralgia [Unknown]

NARRATIVE: CASE EVENT DATE: 20001101
